FAERS Safety Report 8461127-0 (Version None)
Quarter: 2012Q2

REPORT INFORMATION
  Report Type: 
  Country: None (occurrence: None)
  Receive Date: 20120625
  Receipt Date: 20120619
  Transmission Date: 20120825
  Serious: No
  Sender: FDA-Public Use
  Company Number: US-PFIZER INC-2012148739

PATIENT
  Sex: Female
  Weight: 80.272 kg

DRUGS (11)
  1. SPIRONOLACTONE [Concomitant]
     Indication: POLYURIA
     Dosage: 25 MG, DAILY
  2. COREG [Concomitant]
     Indication: CARDIOMYOPATHY
  3. ATACAND [Concomitant]
     Indication: CARDIAC FAILURE
  4. LASIX [Concomitant]
     Indication: HYPERTENSION
     Dosage: 20 MG, DAILY
  5. LANTUS [Concomitant]
     Indication: DIABETES MELLITUS
     Dosage: 20 IU, DAILY
  6. LEVOTHYROXINE [Concomitant]
     Indication: HYPOTHYROIDISM
     Dosage: 50 UG, DAILY
  7. TIKOSYN [Suspect]
     Indication: VENTRICULAR TACHYCARDIA
  8. TIKOSYN [Suspect]
     Indication: ATRIAL FIBRILLATION
     Dosage: 125 UG, 2X/DAY
     Dates: start: 20120501
  9. COREG [Concomitant]
     Indication: HYPERTENSION
     Dosage: 6.25 MG, DAILY
  10. ATACAND [Concomitant]
     Indication: HYPERTENSION
     Dosage: 4 MG, DAILY
  11. TIKOSYN [Suspect]
     Indication: VENTRICULAR FIBRILLATION

REACTIONS (1)
  - DECREASED APPETITE [None]
